FAERS Safety Report 5044536-1 (Version None)
Quarter: 2006Q2

REPORT INFORMATION
  Report Type: 
  Country: None (occurrence: None)
  Receive Date: 20060629
  Receipt Date: 20060619
  Transmission Date: 20061013
  Serious: Yes (Disabling, Other)
  Sender: FDA-Public Use
  Company Number: 2006049017

PATIENT
  Sex: Male
  Weight: 68.0396 kg

DRUGS (1)
  1. NEURONTIN [Suspect]
     Indication: OESOPHAGEAL SPASM
     Dosage: 1800 MG (300 MG, 1 D),
     Dates: start: 19980101

REACTIONS (20)
  - ANXIETY [None]
  - CEREBROVASCULAR ACCIDENT [None]
  - CONFUSIONAL STATE [None]
  - DRUG INEFFECTIVE [None]
  - FATIGUE [None]
  - HEART RATE INCREASED [None]
  - HYPERREFLEXIA [None]
  - IMPAIRED WORK ABILITY [None]
  - MALAISE [None]
  - MENTAL IMPAIRMENT [None]
  - NERVOUS SYSTEM DISORDER [None]
  - NERVOUSNESS [None]
  - OESOPHAGEAL DISORDER [None]
  - OESOPHAGEAL SPASM [None]
  - REGURGITATION OF FOOD [None]
  - RETCHING [None]
  - SOMNOLENCE [None]
  - SPEECH DISORDER [None]
  - TEMPERATURE INTOLERANCE [None]
  - UNEMPLOYMENT [None]
